FAERS Safety Report 9451566 (Version 1)
Quarter: 2013Q3

REPORT INFORMATION
  Report Type: Spontaneous
  Country: SE (occurrence: SE)
  Receive Date: 20130811
  Receipt Date: 20130811
  Transmission Date: 20140515
  Serious: Yes (Other)
  Sender: FDA-Public Use
  Company Number: SE-UCBSA-094074

PATIENT
  Age: 46 Year
  Sex: Female

DRUGS (5)
  1. CIMZIA [Suspect]
     Indication: RHEUMATOID ARTHRITIS
     Route: 058
     Dates: start: 20111207, end: 20130419
  2. METHOTREXATE ORION [Concomitant]
  3. FOLACIN [Concomitant]
  4. BRUFEN [Concomitant]
  5. PANODIL FORTE [Concomitant]
     Dosage: 1 G

REACTIONS (5)
  - Pyelonephritis [Unknown]
  - Fatigue [Recovering/Resolving]
  - Somnolence [Recovering/Resolving]
  - Malaise [Not Recovered/Not Resolved]
  - Vitamin B12 deficiency [Unknown]
